FAERS Safety Report 12575710 (Version 6)
Quarter: 2020Q1

REPORT INFORMATION
  Report Type: Spontaneous
  Country: US (occurrence: US)
  Receive Date: 20160720
  Receipt Date: 20200303
  Transmission Date: 20200409
  Serious: Yes (Other)
  Sender: FDA-Public Use
  Company Number: US-JNJFOC-20160705737

PATIENT
  Age: 57 Year
  Sex: Female
  Weight: 90.8 kg

DRUGS (6)
  1. LEVAQUIN [Suspect]
     Active Substance: LEVOFLOXACIN
     Indication: POST PROCEDURAL FEVER
     Dosage: FOR 10 DAYS
     Route: 042
     Dates: start: 1997
  2. SYNTHROID [Concomitant]
     Active Substance: LEVOTHYROXINE SODIUM
     Indication: HYPOTHYROIDISM
     Route: 065
     Dates: start: 1986
  3. LEVAQUIN [Suspect]
     Active Substance: LEVOFLOXACIN
     Dosage: FOR 28 DAYS
     Route: 042
  4. MORPHINE [Concomitant]
     Active Substance: MORPHINE
     Route: 065
  5. LEVAQUIN [Suspect]
     Active Substance: LEVOFLOXACIN
     Indication: POST PROCEDURAL FEVER
     Dosage: FOR 28 DAYS
     Route: 048
     Dates: end: 2005
  6. ULTRAM [Concomitant]
     Active Substance: TRAMADOL HYDROCHLORIDE
     Dosage: 50-100 MG NO MORE THAN 7 PILLS/DAY
     Route: 065

REACTIONS (14)
  - Adverse event [Unknown]
  - Trigger finger [Unknown]
  - Intervertebral disc protrusion [Not Recovered/Not Resolved]
  - Muscular weakness [Not Recovered/Not Resolved]
  - Ligament rupture [Not Recovered/Not Resolved]
  - Munchausen^s syndrome [Unknown]
  - Rotator cuff syndrome [Not Recovered/Not Resolved]
  - Muscle rupture [Unknown]
  - Gait disturbance [Unknown]
  - Arthropathy [Unknown]
  - Myalgia [Not Recovered/Not Resolved]
  - Ligament rupture [Not Recovered/Not Resolved]
  - Fracture [Not Recovered/Not Resolved]
  - Meniscus injury [Unknown]

NARRATIVE: CASE EVENT DATE: 1997
